FAERS Safety Report 4664148-9 (Version None)
Quarter: 2005Q2

REPORT INFORMATION
  Report Type: 
  Country: None (occurrence: None)
  Receive Date: 20050516
  Receipt Date: 20050516
  Transmission Date: 20051028
  Serious: Yes (Hospitalization)
  Sender: FDA-Public Use
  Company Number: None

PATIENT
  Age: 81 Year
  Sex: Male

DRUGS (13)
  1. PHENYTOIN [Suspect]
     Indication: CEREBROVASCULAR ACCIDENT
     Dosage: 100MG  PO TID
     Route: 048
     Dates: start: 20050112, end: 20050305
  2. PHENYTOIN [Suspect]
     Indication: CONVULSION
     Dosage: 100MG  PO TID
     Route: 048
     Dates: start: 20050112, end: 20050305
  3. PLAVIX [Concomitant]
  4. FELODIPINE [Concomitant]
  5. ATENOLOL [Concomitant]
  6. ZOLOFT [Concomitant]
  7. ARICEPT [Concomitant]
  8. ISMN [Concomitant]
  9. LASIX [Concomitant]
  10. ASPIRIN [Concomitant]
  11. DILANTIN [Concomitant]
  12. QUETIAPINE FUMARATE [Concomitant]
  13. ETODOLAC [Concomitant]

REACTIONS (2)
  - ANTICONVULSANT DRUG LEVEL INCREASED [None]
  - MENTAL STATUS CHANGES [None]
